FAERS Safety Report 5118048-0 (Version None)
Quarter: 2006Q3

REPORT INFORMATION
  Report Type: 
  Country: None (occurrence: None)
  Receive Date: 20060929
  Receipt Date: 20060922
  Transmission Date: 20061208
  Serious: Yes (Other)
  Sender: FDA-Public Use
  Company Number: US-ROXANE LABORATORIES, INC-2006-BP-11242RO

PATIENT
  Age: 62 Year
  Sex: Male

DRUGS (4)
  1. DIGOXIN [Suspect]
     Indication: ATRIAL FIBRILLATION
  2. WARFARIN [Suspect]
  3. AMIODARONE HCL [Suspect]
  4. SYNTHROID [Concomitant]
     Indication: HYPOTHYROIDISM

REACTIONS (2)
  - ARTERIAL STENOSIS [None]
  - ARTERIAL THROMBOSIS LIMB [None]
